FAERS Safety Report 6562644-0 (Version None)
Quarter: 2010Q1

REPORT INFORMATION
  Report Type: 
  Country: None (occurrence: None)
  Receive Date: 20100130
  Receipt Date: 20091117
  Transmission Date: 20100710
  Serious: No
  Sender: FDA-Public Use
  Company Number: US-ABBOTT-09P-163-0609085-00

PATIENT
  Sex: Female
  Weight: 59.928 kg

DRUGS (16)
  1. HUMIRA [Suspect]
     Indication: RHEUMATOID ARTHRITIS
     Route: 058
     Dates: start: 20021201
  2. HUMIRA [Suspect]
     Route: 058
  3. METHOTREXATE [Concomitant]
     Indication: DRUG USE FOR UNKNOWN INDICATION
  4. PREDNISONE [Concomitant]
     Indication: DRUG USE FOR UNKNOWN INDICATION
  5. PLAQUENIL [Concomitant]
     Indication: DRUG USE FOR UNKNOWN INDICATION
  6. PRISTIQ [Concomitant]
     Indication: ANXIETY
  7. KLONOPIN [Concomitant]
     Indication: DRUG USE FOR UNKNOWN INDICATION
     Route: 048
  8. FOLIC ACID [Concomitant]
     Indication: DRUG USE FOR UNKNOWN INDICATION
  9. LOW ESTROL [Concomitant]
     Indication: CONTRACEPTION
  10. IMITREX [Concomitant]
     Indication: MIGRAINE
  11. MUCINEX [Concomitant]
     Indication: DRUG USE FOR UNKNOWN INDICATION
  12. BENADRYL [Concomitant]
     Indication: DRUG USE FOR UNKNOWN INDICATION
  13. ZYRTEC [Concomitant]
     Indication: DRUG USE FOR UNKNOWN INDICATION
  14. ZEGERID [Concomitant]
     Indication: DRUG USE FOR UNKNOWN INDICATION
  15. MOTRIN [Concomitant]
     Indication: DRUG USE FOR UNKNOWN INDICATION
  16. TYLENOL-500 [Concomitant]
     Indication: DRUG USE FOR UNKNOWN INDICATION

REACTIONS (5)
  - ABDOMINAL PAIN UPPER [None]
  - COLITIS [None]
  - DIARRHOEA [None]
  - MALAISE [None]
  - RHEUMATOID ARTHRITIS [None]
